FAERS Safety Report 9204302 (Version 2)
Quarter: 2013Q2

REPORT INFORMATION
  Report Type: Spontaneous
  Country: JP (occurrence: JP)
  Receive Date: 20130402
  Receipt Date: 20130530
  Transmission Date: 20140414
  Serious: Yes (Death, Other)
  Sender: FDA-Public Use
  Company Number: JP-ROCHE-1209058

PATIENT
  Age: 69 Year
  Sex: Male

DRUGS (4)
  1. XELODA [Suspect]
     Indication: COLON CANCER METASTATIC
     Dosage: DOSAGE IS UNCERTAIN.
     Route: 048
  2. AVASTIN [Suspect]
     Indication: COLON CANCER METASTATIC
     Dosage: DOSAGE IS UNCERTAIN.
     Route: 041
  3. ELPLAT [Concomitant]
     Indication: COLON CANCER METASTATIC
     Dosage: DOSAGE IS UNCERTAIN.
     Route: 041
  4. VECTIBIX [Concomitant]
     Indication: COLON CANCER METASTATIC
     Dosage: DOSAGE IS UNCERTAIN.
     Route: 041

REACTIONS (2)
  - Embolism [Fatal]
  - Hepatic cirrhosis [Unknown]
